FAERS Safety Report 23958733 (Version 2)
Quarter: 2024Q3

REPORT INFORMATION
  Report Type: Spontaneous
  Country: MA (occurrence: None)
  Receive Date: 20240610
  Receipt Date: 20240717
  Transmission Date: 20241016
  Serious: Yes (Death, Other)
  Sender: UNICHEM
  Company Number: MA-Unichem Pharmaceuticals (USA) Inc-UCM202406-000685

PATIENT
  Age: 26 Year
  Sex: Female

DRUGS (7)
  1. METRONIDAZOLE [Suspect]
     Active Substance: METRONIDAZOLE
     Indication: Diarrhoea
  2. MESALAMINE [Concomitant]
     Active Substance: MESALAMINE
     Indication: Crohn^s disease
     Dosage: UNKNOWN
  3. ADALIMUMAB [Concomitant]
     Active Substance: ADALIMUMAB\ISOPROPYL ALCOHOL
     Indication: Crohn^s disease
     Dosage: UNKNOWN
  4. METHOTREXATE [Concomitant]
     Active Substance: METHOTREXATE
     Indication: Crohn^s disease
     Dosage: UNKNOWN
  5. OLANZAPINE [Concomitant]
     Active Substance: OLANZAPINE
     Indication: Product used for unknown indication
     Dosage: UNKNOWN
  6. AZATHIOPRINE [Concomitant]
     Active Substance: AZATHIOPRINE
     Indication: Crohn^s disease
     Dosage: UNKNOWN
  7. CYCLOSPORINE [Concomitant]
     Active Substance: CYCLOSPORINE
     Indication: Crohn^s disease
     Dosage: UNKNOWN

REACTIONS (12)
  - Condition aggravated [Fatal]
  - Gait disturbance [Fatal]
  - Diplopia [Fatal]
  - Irregular sleep wake rhythm disorder [Fatal]
  - Cachexia [Fatal]
  - Dystonia [Fatal]
  - Mutism [Fatal]
  - Pneumonia aspiration [Fatal]
  - Respiratory distress [Fatal]
  - Septic shock [Fatal]
  - Toxic encephalopathy [Fatal]
  - Toxicity to various agents [Fatal]
